FAERS Safety Report 6691801-8 (Version None)
Quarter: 2010Q2

REPORT INFORMATION
  Report Type: 
  Country: None (occurrence: None)
  Receive Date: 20100422
  Receipt Date: 20090226
  Transmission Date: 20101027
  Serious: No
  Sender: FDA-Public Use
  Company Number: US-ASTRAZENECA-2009UW05314

PATIENT
  Sex: Female
  Weight: 163.3 kg

DRUGS (4)
  1. METOPROLOL SUCCINATE [Suspect]
     Route: 048
     Dates: start: 20090216
  2. AVAPRO [Concomitant]
  3. LEVOTHYROXINE [Concomitant]
  4. FUROSEMIDE [Concomitant]

REACTIONS (1)
  - BLOOD PRESSURE FLUCTUATION [None]
